FAERS Safety Report 13854663 (Version 2)
Quarter: 2017Q3

REPORT INFORMATION
  Report Type: Spontaneous
  Country: US (occurrence: US)
  Receive Date: 20170810
  Receipt Date: 20170811
  Transmission Date: 20171127
  Serious: Yes (Hospitalization, Other)
  Sender: FDA-Public Use
  Company Number: US-PFIZER INC-2017346747

PATIENT
  Age: 52 Year
  Sex: Male
  Weight: 134 kg

DRUGS (3)
  1. AMLODIPINE [Concomitant]
     Active Substance: AMLODIPINE BESYLATE
     Indication: BLOOD PRESSURE ABNORMAL
     Dosage: UNK UNK, 1X/DAY
     Dates: start: 201602
  2. IBUPROFEN. [Suspect]
     Active Substance: IBUPROFEN
     Indication: TOOTHACHE
     Dosage: 3200MG TO 3600MG, DAILY
     Dates: end: 2016
  3. TRAMADOL. [Concomitant]
     Active Substance: TRAMADOL

REACTIONS (5)
  - Drug abuse [Unknown]
  - Oesophageal pain [Unknown]
  - Oesophageal haemorrhage [Unknown]
  - Oesophageal perforation [Unknown]
  - Hypertension [Unknown]

NARRATIVE: CASE EVENT DATE: 201602
